FAERS Safety Report 15108805 (Version 1)
Quarter: 2018Q3

REPORT INFORMATION
  Report Type: Spontaneous
  Country: US (occurrence: US)
  Receive Date: 20180705
  Receipt Date: 20180705
  Transmission Date: 20181010
  Serious: No
  Sender: FDA-Public Use
  Company Number: US-GLENMARK PHARMACEUTICALS-2018GMK034287

PATIENT

DRUGS (1)
  1. CLOBETASOL PROPIONATE OINTMENT USP, 0.05% [Suspect]
     Active Substance: CLOBETASOL PROPIONATE
     Indication: NAIL DISORDER
     Dosage: UNK, 2?3 TIMES A DAY
     Route: 061
     Dates: start: 20180405

REACTIONS (3)
  - Wrong technique in product usage process [Unknown]
  - No adverse event [Unknown]
  - Drug prescribing error [Unknown]

NARRATIVE: CASE EVENT DATE: 20180405
